FAERS Safety Report 9775031 (Version 1)
Quarter: 2013Q4

REPORT INFORMATION
  Report Type: Spontaneous
  Country: US (occurrence: None)
  Receive Date: 20131219
  Receipt Date: 20131219
  Transmission Date: 20140711
  Serious: Yes (Other)
  Sender: FDA-Public Use
  Company Number: None

PATIENT
  Sex: Female
  Weight: 47.63 kg

DRUGS (7)
  1. LEVOFLOXACIN 500 MG TABLETS [Suspect]
     Indication: LUNG INFECTION
     Dosage: BY MOUTH
     Dates: start: 20131014, end: 20131005
  2. LEVOFLOXACIN 500 MG TABLETS [Suspect]
     Dosage: BY MOUTH
     Dates: start: 20131014, end: 20131005
  3. LEVOFLOXACIN 500 MG TABLETS [Suspect]
     Dosage: BY MOUTH
     Dates: start: 20131014, end: 20131005
  4. PANTOPRAZOLE [Concomitant]
  5. PLAVIX [Concomitant]
  6. VERAPAMIL [Concomitant]
  7. MAG-OXIDE [Concomitant]

REACTIONS (1)
  - Rectal haemorrhage [None]
